FAERS Safety Report 19362277 (Version 2)
Quarter: 2021Q3

REPORT INFORMATION
  Report Type: Report from Study
  Country: US (occurrence: US)
  Receive Date: 20210601
  Receipt Date: 20210708
  Transmission Date: 20211014
  Serious: Yes (Life-Threatening, Hospitalization)
  Sender: FDA-Public Use
  Company Number: US-AMGEN INC.-USACT2021081209

PATIENT
  Age: 64 Year
  Sex: Female
  Weight: 69.09 kg

DRUGS (26)
  1. PROCHLORPERAZINE. [Concomitant]
     Active Substance: PROCHLORPERAZINE
     Dosage: 10 MILLIGRAM
     Route: 048
     Dates: start: 2015
  2. FLUTICASONE. [Concomitant]
     Active Substance: FLUTICASONE
     Dosage: 50 MICROGRAM
     Route: 050
     Dates: start: 201506
  3. CLINDAMYCIN PHOSPHATE. [Concomitant]
     Active Substance: CLINDAMYCIN PHOSPHATE
     Dosage: UNK
     Route: 061
     Dates: start: 20210511
  4. PANITUMUMAB [Suspect]
     Active Substance: PANITUMUMAB
     Indication: NEOPLASM
  5. TRAMETINIB [Suspect]
     Active Substance: TRAMETINIB
     Indication: NEOPLASM
  6. LEVOTHYROXINE. [Concomitant]
     Active Substance: LEVOTHYROXINE
     Dosage: 50 MICROGRAM
     Route: 048
     Dates: start: 2017
  7. MORPHINE SULFATE. [Concomitant]
     Active Substance: MORPHINE SULFATE
     Dosage: 30 MILLIGRAM
     Route: 048
     Dates: start: 202009
  8. ALBUTEROL [SALBUTAMOL] [Concomitant]
     Active Substance: ALBUTEROL
     Dosage: 2.5 MILLIGRAM
     Route: 050
     Dates: start: 201506
  9. SYMBICORT [Concomitant]
     Active Substance: BUDESONIDE\FORMOTEROL FUMARATE DIHYDRATE
     Dosage: 2 UNK
     Route: 050
     Dates: start: 2017
  10. AMG 510 [Suspect]
     Active Substance: AMG-510
     Indication: K-RAS GENE MUTATION
     Dosage: 960 MILLIGRAM
     Route: 042
     Dates: start: 20210427, end: 20210519
  11. TRAMETINIB [Suspect]
     Active Substance: TRAMETINIB
     Indication: K-RAS GENE MUTATION
     Dosage: 1.5 MILLIGRAM
     Route: 042
     Dates: start: 20210427
  12. LORAZEPAM. [Concomitant]
     Active Substance: LORAZEPAM
     Dosage: 1 MILLIGRAM
     Route: 048
     Dates: start: 2015
  13. MAGNESIUM HYDROXIDE. [Concomitant]
     Active Substance: MAGNESIUM HYDROXIDE
     Dosage: 1 MILLIGRAM
     Route: 048
     Dates: start: 2015
  14. OXYGEN. [Concomitant]
     Active Substance: OXYGEN
     Dosage: 2 UNK
     Route: 050
     Dates: start: 2016
  15. IRON [Concomitant]
     Active Substance: IRON
     Dosage: 325 MILLIGRAM
     Route: 048
     Dates: start: 20210424
  16. PANITUMUMAB [Suspect]
     Active Substance: PANITUMUMAB
     Indication: K-RAS GENE MUTATION
     Dosage: 325 MILLIGRAM
     Route: 042
     Dates: start: 20210427
  17. SODIUM CHLORIDE. [Concomitant]
     Active Substance: SODIUM CHLORIDE
     Dosage: 1 UNK
     Route: 042
     Dates: start: 20210511, end: 20210518
  18. ACETAMINOPHEN. [Concomitant]
     Active Substance: ACETAMINOPHEN
     Dosage: 500 MILLIGRAM
     Route: 048
     Dates: start: 2008
  19. PREDNISONE. [Concomitant]
     Active Substance: PREDNISONE
     Dosage: 2.5 MILLIGRAM
     Route: 048
     Dates: start: 2015
  20. OXYCODONE [Concomitant]
     Active Substance: OXYCODONE
     Dosage: 5 MILLIGRAM
     Route: 048
     Dates: start: 2015
  21. LIDOCAINE HCL [Concomitant]
     Active Substance: LIDOCAINE HYDROCHLORIDE
     Dosage: 1 UNK
     Route: 050
     Dates: start: 20210511
  22. METHYLPREDNISOLONE. [Concomitant]
     Active Substance: METHYLPREDNISOLONE
     Dosage: 24 MILLIGRAM
     Route: 048
     Dates: start: 20210518, end: 20210518
  23. AMG 510 [Suspect]
     Active Substance: AMG-510
     Indication: NEOPLASM
  24. CITALOPRAM [Concomitant]
     Active Substance: CITALOPRAM HYDROBROMIDE
     Dosage: 10 MILLIGRAM
     Route: 048
     Dates: start: 2020
  25. IPRATROPIUM [Concomitant]
     Active Substance: IPRATROPIUM
     Dosage: 1 UNK
     Route: 050
     Dates: start: 2015
  26. ONDANSETRON [Concomitant]
     Active Substance: ONDANSETRON
     Dosage: 4 MILLIGRAM
     Route: 048
     Dates: start: 2015

REACTIONS (2)
  - Dehydration [Recovered/Resolved]
  - Cellulitis [Recovered/Resolved]

NARRATIVE: CASE EVENT DATE: 20210524
